FAERS Safety Report 7912771-8 (Version None)
Quarter: 2011Q4

REPORT INFORMATION
  Report Type: 
  Country: None (occurrence: None)
  Receive Date: 20111114
  Receipt Date: 20100713
  Transmission Date: 20120403
  Serious: Yes (Hospitalization)
  Sender: FDA-Public Use
  Company Number: US-GLAXOSMITHKLINE-A0871276A

PATIENT
  Age: 43 Year
  Sex: Female

DRUGS (5)
  1. ACCUPRIL [Concomitant]
  2. HYDROCHLOROTHIAZIDE [Concomitant]
  3. METFORMIN [Concomitant]
  4. AVANDIA [Suspect]
     Indication: TYPE 2 DIABETES MELLITUS
     Dosage: 4MG PER DAY
     Route: 048
  5. ORAL CONTRACEPTION [Concomitant]

REACTIONS (1)
  - CEREBROVASCULAR ACCIDENT [None]
